FAERS Safety Report 10082659 (Version 1)
Quarter: 2014Q2

REPORT INFORMATION
  Report Type: Spontaneous
  Country: GB (occurrence: GB)
  Receive Date: 20140416
  Receipt Date: 20140416
  Transmission Date: 20141212
  Serious: Yes (Hospitalization, Other)
  Sender: FDA-Public Use
  Company Number: GB-MYLANLABS-2014S1008413

PATIENT
  Age: 78 Year
  Sex: Female
  Weight: 80 kg

DRUGS (6)
  1. DOXYCYCLINE [Suspect]
     Indication: RESPIRATORY TRACT INFECTION
     Route: 048
     Dates: start: 20140122, end: 20140205
  2. BUPRENORPHINE HYDROCHLORIDE [Concomitant]
  3. MOMETASONE FUROATE [Concomitant]
  4. OMEPRAZOLE [Concomitant]
  5. PIROXICAM [Concomitant]
  6. CO-AMOXICLAV [Concomitant]
     Dates: end: 20140116

REACTIONS (4)
  - Jaundice [Recovering/Resolving]
  - Liver function test abnormal [Recovering/Resolving]
  - Pruritus [Unknown]
  - Drug-induced liver injury [Recovering/Resolving]
